FAERS Safety Report 17440443 (Version 1)
Quarter: 2020Q1

REPORT INFORMATION
  Report Type: Spontaneous
  Country: US (occurrence: US)
  Receive Date: 20200220
  Receipt Date: 20200220
  Transmission Date: 20200409
  Serious: Yes (Hospitalization)
  Sender: FDA-Public Use
  Company Number: US-ROCHE-2547479

PATIENT
  Age: 78 Year
  Sex: Male
  Weight: 63.56 kg

DRUGS (10)
  1. ESBRIET [Suspect]
     Active Substance: PIRFENIDONE
     Indication: IDIOPATHIC PULMONARY FIBROSIS
     Route: 065
     Dates: start: 201811, end: 201901
  2. NEURONTIN [Concomitant]
     Active Substance: GABAPENTIN
  3. TYLENOL [Concomitant]
     Active Substance: ACETAMINOPHEN
  4. FLONASE [Concomitant]
     Active Substance: FLUTICASONE PROPIONATE
  5. OFEV [Concomitant]
     Active Substance: NINTEDANIB
  6. SEROQUEL [Concomitant]
     Active Substance: QUETIAPINE FUMARATE
     Route: 065
  7. POTASSIUM [Concomitant]
     Active Substance: POTASSIUM
  8. MUCINEX [Concomitant]
     Active Substance: GUAIFENESIN
  9. ALBUTEROL [SALBUTAMOL] [Concomitant]
     Active Substance: ALBUTEROL
     Route: 065
  10. OXYGEN. [Concomitant]
     Active Substance: OXYGEN
     Route: 065

REACTIONS (7)
  - Nausea [Unknown]
  - Deep vein thrombosis [Not Recovered/Not Resolved]
  - Aortic stenosis [Not Recovered/Not Resolved]
  - Blood pressure decreased [Not Recovered/Not Resolved]
  - Myocardial infarction [Recovered/Resolved]
  - Arthralgia [Unknown]
  - Abnormal loss of weight [Not Recovered/Not Resolved]

NARRATIVE: CASE EVENT DATE: 201910
